FAERS Safety Report 9781534 (Version 1)
Quarter: 2013Q4

REPORT INFORMATION
  Report Type: Spontaneous
  Country: FR (occurrence: FR)
  Receive Date: 20131224
  Receipt Date: 20131224
  Transmission Date: 20140711
  Serious: Yes (Hospitalization, Other)
  Sender: FDA-Public Use
  Company Number: FR-ELI_LILLY_AND_COMPANY-FR201312007040

PATIENT
  Age: 42 Year
  Sex: Female

DRUGS (5)
  1. CYMBALTA [Suspect]
     Indication: PRODUCT USED FOR UNKNOWN INDICATION
     Dosage: UNK UNK, UNKNOWN
     Route: 065
     Dates: start: 20131204, end: 20131204
  2. LYRICA [Suspect]
     Indication: PRODUCT USED FOR UNKNOWN INDICATION
     Dosage: UNK, UNKNOWN
     Route: 065
  3. LYRICA [Suspect]
     Dosage: UNK, UNKNOWN
     Route: 065
     Dates: start: 20131204
  4. SERESTA [Suspect]
     Indication: PRODUCT USED FOR UNKNOWN INDICATION
     Dosage: UNK, UNKNOWN
     Route: 065
     Dates: start: 20131204, end: 20131204
  5. TRAMADOL [Suspect]
     Indication: PRODUCT USED FOR UNKNOWN INDICATION
     Dosage: UNK, UNKNOWN
     Route: 065
     Dates: start: 20131204, end: 20131204

REACTIONS (7)
  - Nystagmus [Recovered/Resolved]
  - Suicide attempt [Unknown]
  - Depressed level of consciousness [Recovered/Resolved]
  - Hallucination [Recovered/Resolved]
  - Tremor [Recovered/Resolved]
  - Confusional state [Unknown]
  - Intentional overdose [Unknown]
